FAERS Safety Report 11471217 (Version 2)
Quarter: 2015Q3

REPORT INFORMATION
  Report Type: Spontaneous
  Country: US (occurrence: US)
  Receive Date: 20150903
  Receipt Date: 20150903
  Transmission Date: 20151125
  Serious: Yes (Other)
  Sender: FDA-Public Use
  Company Number: US-ELI_LILLY_AND_COMPANY-US201201008791

PATIENT
  Age: 70 Year
  Sex: Female

DRUGS (1)
  1. DULOXETINE HYDROCHLORIDE. [Suspect]
     Active Substance: DULOXETINE HYDROCHLORIDE
     Indication: MUSCULOSKELETAL PAIN
     Dosage: 60 MG, QD
     Dates: start: 201101, end: 201201

REACTIONS (5)
  - Decreased appetite [Unknown]
  - Pain in extremity [Unknown]
  - Weight decreased [Unknown]
  - Dyskinesia [Unknown]
  - Tremor [Unknown]

NARRATIVE: CASE EVENT DATE: 201109
